FAERS Safety Report 19835331 (Version 1)
Quarter: 2021Q3

REPORT INFORMATION
  Report Type: Spontaneous
  Country: DE (occurrence: DE)
  Receive Date: 20210915
  Receipt Date: 20210915
  Transmission Date: 20211014
  Serious: Yes (Hospitalization)
  Sender: FDA-Public Use
  Company Number: DE-ACCORD-238374

PATIENT
  Age: 69 Year
  Sex: Male
  Weight: 61 kg

DRUGS (9)
  1. PANTOPRAZOLE [Concomitant]
     Active Substance: PANTOPRAZOLE
     Dosage: 40 MG, 1?0?0?0, TABLETS
     Route: 048
  2. CREON [Concomitant]
     Active Substance: PANCRELIPASE AMYLASE\PANCRELIPASE LIPASE\PANCRELIPASE PROTEASE
     Dosage: 25000 IU, 1?1?1?0, CAPSULES
     Route: 048
  3. INSULIN ASPART [Concomitant]
     Active Substance: INSULIN ASPART
     Dosage: 300 IU / 3ML, 6?3?3?0, PRE?FILLED SYRINGES
     Route: 058
  4. FLUOROURACIL. [Suspect]
     Active Substance: FLUOROURACIL
     Indication: PRODUCT USED FOR UNKNOWN INDICATION
     Route: 042
  5. INSULIN GLARGINE [Concomitant]
     Active Substance: INSULIN GLARGINE
     Dosage: 450 E/1.5ML, 0?0?0?6, PRE?FILLED SYRINGES
     Route: 058
  6. LOPERAMIDE [Concomitant]
     Active Substance: LOPERAMIDE
     Dosage: 2 MG, IF NECESSARY, TABLETS
     Route: 048
  7. IRINOTECAN [Suspect]
     Active Substance: IRINOTECAN
     Indication: PRODUCT USED FOR UNKNOWN INDICATION
     Route: 042
  8. TINZAPARIN/TINZAPARIN SODIUM [Suspect]
     Active Substance: TINZAPARIN SODIUM
     Indication: PRODUCT USED FOR UNKNOWN INDICATION
     Dosage: 10,000 IU / 0.5ML, 0?0?1?0, PRE?FILLED SYRINGES
     Route: 058
  9. PIVMECILLINAM/PIVMECILLINAM HYDROCHLORIDE [Concomitant]
     Dosage: 400 MG, 1?1?1?0, TABLETS
     Route: 048

REACTIONS (5)
  - Fluid intake reduced [Unknown]
  - Pyrexia [Unknown]
  - Diarrhoea [Unknown]
  - Fine motor skill dysfunction [Unknown]
  - Decreased appetite [Unknown]
